FAERS Safety Report 13492724 (Version 1)
Quarter: 2017Q2

REPORT INFORMATION
  Report Type: Spontaneous
  Country: RU (occurrence: RU)
  Receive Date: 20170427
  Receipt Date: 20170427
  Transmission Date: 20170830
  Serious: Yes (Hospitalization, Other)
  Sender: FDA-Public Use
  Company Number: RU-ABBVIE-17P-251-1956414-00

PATIENT
  Sex: Male

DRUGS (3)
  1. PLAVIX [Concomitant]
     Active Substance: CLOPIDOGREL BISULFATE
     Indication: PRODUCT USED FOR UNKNOWN INDICATION
  2. TRICOR [Suspect]
     Active Substance: FENOFIBRATE
     Indication: PRODUCT USED FOR UNKNOWN INDICATION
     Dosage: RED (NEW DESIGN, RED)
     Route: 048
  3. TRICOR [Suspect]
     Active Substance: FENOFIBRATE
     Dosage: BLUE (OLD DESIGN)
     Route: 048

REACTIONS (4)
  - Thrombosis [Unknown]
  - Infarction [Unknown]
  - Angina pectoris [Unknown]
  - Device occlusion [Unknown]

NARRATIVE: CASE EVENT DATE: 201704
